FAERS Safety Report 12404354 (Version 1)
Quarter: 2016Q2

REPORT INFORMATION
  Report Type: Report from Study
  Country: US (occurrence: US)
  Receive Date: 20160525
  Receipt Date: 20160525
  Transmission Date: 20160815
  Serious: Yes (Life-Threatening, Hospitalization)
  Sender: FDA-Public Use
  Company Number: US-PFIZER INC-2016264493

PATIENT
  Age: 73 Year
  Sex: Male
  Weight: 88.5 kg

DRUGS (7)
  1. NORVASC [Suspect]
     Active Substance: AMLODIPINE BESYLATE
     Dosage: UNK
  2. COTAREG [Concomitant]
     Active Substance: HYDROCHLOROTHIAZIDE\VALSARTAN
     Dosage: UNK
     Dates: start: 20030406
  3. RUXOLITINIB [Suspect]
     Active Substance: RUXOLITINIB
     Indication: POLYCYTHAEMIA VERA
     Dosage: 10 MG, BID
     Route: 048
     Dates: start: 20130506
  4. CARDIOASPIRINA [Concomitant]
     Active Substance: ASPIRIN
     Dosage: UNK
     Dates: start: 20030406
  5. NORVASC [Suspect]
     Active Substance: AMLODIPINE BESYLATE
     Indication: HYPERTENSION
     Dosage: 5 MG, QD
     Dates: start: 20030406
  6. RUXOLITINIB [Suspect]
     Active Substance: RUXOLITINIB
     Dosage: UNK
     Dates: start: 20150824
  7. ZYLORIC [Concomitant]
     Active Substance: ALLOPURINOL
     Dosage: UNK
     Dates: start: 20130111

REACTIONS (1)
  - Atrioventricular block [Recovered/Resolved]

NARRATIVE: CASE EVENT DATE: 20150824
